FAERS Safety Report 14419345 (Version 1)
Quarter: 2018Q1

REPORT INFORMATION
  Report Type: Spontaneous
  Country: US (occurrence: US)
  Receive Date: 20180120
  Receipt Date: 20180120
  Transmission Date: 20180509
  Serious: Yes (Other)
  Sender: FDA-Public Use
  Company Number: None

PATIENT
  Age: 56 Year
  Sex: Female
  Weight: 78.75 kg

DRUGS (1)
  1. BUPROPION 150 MG XL [Suspect]
     Active Substance: BUPROPION HYDROCHLORIDE
     Indication: DEPRESSION
     Dosage: ?          QUANTITY:3 TABLET(S);?
     Route: 048

REACTIONS (7)
  - Anxiety [None]
  - Product odour abnormal [None]
  - Nausea [None]
  - Palpitations [None]
  - Intrusive thoughts [None]
  - Product substitution issue [None]
  - Dry mouth [None]

NARRATIVE: CASE EVENT DATE: 20180101
